FAERS Safety Report 4290424-8 (Version None)
Quarter: 2004Q1

REPORT INFORMATION
  Report Type: 
  Country: None (occurrence: None)
  Receive Date: 20040209
  Receipt Date: 20040202
  Transmission Date: 20041129
  Serious: Yes (Life-Threatening)
  Sender: FDA-Public Use
  Company Number: CIP04000068

PATIENT
  Age: 72 Year
  Sex: Female

DRUGS (8)
  1. ACTONEL [Suspect]
     Indication: OSTEOPOROSIS
     Dosage: 2.5 MG DAILY, ORAL
     Route: 048
     Dates: start: 20030414, end: 20030609
  2. ACTONEL [Suspect]
     Indication: OSTEOPOROSIS
     Dosage: 2.5 MG DAILY, ORAL
     Route: 048
     Dates: start: 20030704, end: 20030728
  3. ELCATONIN (ELCATONIN) [Suspect]
     Indication: OSTEOPOROSIS
     Dosage: 10 MCG DAILY, INTRAMUSCULAR
     Route: 030
     Dates: start: 20030414, end: 20030725
  4. ALFACALCIDOL (ALFACALCIDOL) [Concomitant]
  5. LOXONIN (LOXOPROFEN SODIUM) [Concomitant]
  6. ALANTA SF (ALDIOXA) [Concomitant]
  7. MOHRUS (KETOPROFEN) WRAP [Concomitant]
  8. AMLODIPINE BESYLATE [Concomitant]

REACTIONS (8)
  - ASPARTATE AMINOTRANSFERASE INCREASED [None]
  - BLOOD LACTATE DEHYDROGENASE INCREASED [None]
  - BLOOD POTASSIUM DECREASED [None]
  - BLOOD URIC ACID INCREASED [None]
  - HAEMATOCRIT DECREASED [None]
  - HAEMOGLOBIN DECREASED [None]
  - HYPOGLYCAEMIA [None]
  - RED BLOOD CELL COUNT DECREASED [None]
